FAERS Safety Report 4303323-X (Version None)
Quarter: 2004Q1

REPORT INFORMATION
  Report Type: 
  Country: None (occurrence: None)
  Receive Date: 20040223
  Receipt Date: 20040211
  Transmission Date: 20041129
  Serious: Yes (Hospitalization)
  Sender: FDA-Public Use
  Company Number: DE-JNJFOC-20040202797

PATIENT
  Age: 42 Year
  Sex: Male
  Weight: 120 kg

DRUGS (5)
  1. RISPERDAL CONSTA [Suspect]
     Indication: SCHIZOPHRENIA, RESIDUAL TYPE
     Dosage: 50 MG, 1 IN 2 WEEK, INTRA-MUSCULAR
     Route: 030
     Dates: start: 20030205
  2. HALDOL [Concomitant]
  3. RANITIDINE [Concomitant]
  4. RISPERDAL [Concomitant]
  5. AESCUSAN (ESCIN) [Concomitant]

REACTIONS (1)
  - HOSPITALISATION [None]
